FAERS Safety Report 5690688-X (Version None)
Quarter: 2008Q1

REPORT INFORMATION
  Report Type: 
  Country: None (occurrence: None)
  Receive Date: 20080331
  Receipt Date: 20080331
  Transmission Date: 20080703
  Serious: Yes (Hospitalization)
  Sender: FDA-Public Use
  Company Number: None

PATIENT
  Age: 60 Year
  Sex: Male

DRUGS (1)
  1. ACETAMINOPHEN AND HYDROCODONE BITARTRATE [Suspect]
     Indication: CANCER PAIN
     Dosage: 10/1000MG QID  PO
     Route: 048
     Dates: start: 20070605, end: 20070817

REACTIONS (2)
  - CONSTIPATION [None]
  - URINARY RETENTION [None]
